FAERS Safety Report 9319341 (Version 2)
Quarter: 2013Q2

REPORT INFORMATION
  Report Type: Spontaneous
  Country: JP (occurrence: JP)
  Receive Date: 20130530
  Receipt Date: 20130619
  Transmission Date: 20140414
  Serious: Yes (Hospitalization, Other)
  Sender: FDA-Public Use
  Company Number: JP-009507513-1305JPN016840

PATIENT
  Age: 33 Year
  Sex: Female

DRUGS (7)
  1. REMERON [Suspect]
     Indication: DEPRESSION
     Dosage: 15 MG, HS
     Route: 048
     Dates: start: 20120905, end: 20130409
  2. REMERON [Suspect]
     Dosage: 30 MG, HS
     Dates: start: 20130410
  3. TETRAMIDE TABLETS 10MG [Concomitant]
     Indication: DEPRESSION
     Dosage: 10 MG, QD
     Route: 048
     Dates: start: 20120905, end: 20130409
  4. MYSLEE [Concomitant]
     Indication: INITIAL INSOMNIA
     Dosage: 10 ML, HS
     Route: 048
     Dates: start: 20120905
  5. MYSLEE [Concomitant]
     Dosage: 10 MG, HS
     Route: 048
     Dates: start: 20130410
  6. LENDORMIN [Concomitant]
     Indication: INITIAL INSOMNIA
     Dosage: 0.25 MG, HS
     Route: 048
     Dates: start: 20120905
  7. CYMBALTA [Concomitant]
     Indication: DEPRESSION
     Dosage: 20 MG, QD
     Route: 048
     Dates: start: 20120905, end: 20130409

REACTIONS (4)
  - Haemorrhage [Unknown]
  - Loss of consciousness [Unknown]
  - Syncope [Recovered/Resolved]
  - Fall [Unknown]
